FAERS Safety Report 9125270 (Version 2)
Quarter: 2013Q3

REPORT INFORMATION
  Report Type: Spontaneous
  Country: BR (occurrence: BR)
  Receive Date: 20130117
  Receipt Date: 20130723
  Transmission Date: 20140515
  Serious: Yes (Other)
  Sender: FDA-Public Use
  Company Number: BR-AMGEN-BRASP2012001539

PATIENT
  Age: 70 Year
  Sex: Female
  Weight: 44 kg

DRUGS (2)
  1. ENBREL [Suspect]
     Indication: RHEUMATOID ARTHRITIS
     Dosage: 50 MG, WEEKLY (1X/WEEK)
     Route: 058
  2. ENBREL [Suspect]
     Dosage: 50 MG, QWK
     Route: 065
     Dates: start: 200811

REACTIONS (16)
  - Dizziness [Not Recovered/Not Resolved]
  - Fall [Unknown]
  - Rash [Unknown]
  - Oedema mouth [Unknown]
  - Swollen tongue [Unknown]
  - Speech disorder [Unknown]
  - Arthralgia [Recovering/Resolving]
  - Visual impairment [Unknown]
  - Pain in extremity [Not Recovered/Not Resolved]
  - Feeling abnormal [Not Recovered/Not Resolved]
  - Weight decreased [Not Recovered/Not Resolved]
  - Pruritus generalised [Not Recovered/Not Resolved]
  - Gait disturbance [Not Recovered/Not Resolved]
  - Drug ineffective [Unknown]
  - Insomnia [Unknown]
  - Hypoaesthesia [Unknown]
